FAERS Safety Report 25822304 (Version 1)
Quarter: 2025Q3

REPORT INFORMATION
  Report Type: Spontaneous
  Country: US (occurrence: US)
  Receive Date: 20250919
  Receipt Date: 20250919
  Transmission Date: 20251021
  Serious: No
  Sender: VIVUS
  Company Number: US-VIVUS LLC-2024V1001462

PATIENT

DRUGS (1)
  1. QSYMIA [Suspect]
     Active Substance: PHENTERMINE HYDROCHLORIDE\TOPIRAMATE
     Indication: Product used for unknown indication
     Route: 048
     Dates: start: 20241201

REACTIONS (5)
  - Paranoia [Not Recovered/Not Resolved]
  - Anxiety [Recovered/Resolved]
  - Palpitations [Recovered/Resolved]
  - Insomnia [Not Recovered/Not Resolved]
  - Fatigue [Not Recovered/Not Resolved]

NARRATIVE: CASE EVENT DATE: 20241201
